FAERS Safety Report 5295609-X (Version None)
Quarter: 2007Q1

REPORT INFORMATION
  Report Type: 
  Country: None (occurrence: None)
  Receive Date: 20070201
  Receipt Date: 20061013
  Transmission Date: 20070707
  Serious: No
  Sender: FDA-Public Use
  Company Number: 2006PV023203

PATIENT
  Sex: Female

DRUGS (5)
  1. BYETTA [Suspect]
     Indication: DIABETES MELLITUS NON-INSULIN-DEPENDENT
     Dosage: 10; 5 MCG; BID; SC
     Route: 058
     Dates: start: 20060901, end: 20061001
  2. BYETTA [Suspect]
     Indication: DIABETES MELLITUS NON-INSULIN-DEPENDENT
     Dosage: 10; 5 MCG; BID; SC
     Route: 058
     Dates: start: 20061001
  3. METFORMIN HCL [Concomitant]
  4. GLIPIZIDE [Concomitant]
  5. LANTUS [Concomitant]

REACTIONS (1)
  - OEDEMA PERIPHERAL [None]
